FAERS Safety Report 6406272-6 (Version None)
Quarter: 2009Q4

REPORT INFORMATION
  Report Type: 
  Country: None (occurrence: None)
  Receive Date: 20091019
  Receipt Date: 20091006
  Transmission Date: 20100525
  Serious: Yes (Hospitalization)
  Sender: FDA-Public Use
  Company Number: PHFR2005GB02830

PATIENT
  Sex: Female

DRUGS (13)
  1. CLOZARIL [Suspect]
     Indication: SCHIZOPHRENIA
     Dosage: 100 MG/DAY
     Route: 048
     Dates: start: 20050712
  2. CLOZARIL [Suspect]
     Dosage: 100MG MANE, 125MG NOCTE
     Route: 048
  3. VENLAFAXINE [Concomitant]
     Indication: DEPRESSION
     Dosage: 225 MG/DAY
     Route: 048
  4. SIMVASTATIN [Concomitant]
     Indication: HYPERCHOLESTEROLAEMIA
     Dosage: 40 MG
     Route: 048
  5. RAMIPRIL [Concomitant]
     Indication: HYPERTENSION
     Dosage: 10MG MANE
     Route: 048
  6. GLICLAZIDE [Concomitant]
     Indication: DIABETES MELLITUS
     Dosage: 80 MG
     Route: 048
  7. NICOTINIC ACID [Concomitant]
     Indication: HYPERTRIGLYCERIDAEMIA
     Dosage: 1500 MG
     Route: 048
  8. LANSOPRAZOLE [Concomitant]
     Indication: DYSPEPSIA
  9. OXYBUTYNIN CHLORIDE [Concomitant]
     Indication: DYSPEPSIA
     Dosage: 10 MG
     Route: 048
  10. METFORMIN HYDROCHLORIDE [Concomitant]
     Indication: DIABETES MELLITUS
     Dosage: 1000 MG, BID
     Route: 048
  11. ZOPICLONE [Concomitant]
     Indication: INSOMNIA
     Dosage: 7.5 MG
     Route: 048
  12. METOCLOPRAMIDE [Concomitant]
     Indication: DIABETES MELLITUS
     Dosage: 10 MG, BID
     Route: 048
  13. MIRTAZAPINE [Concomitant]
     Indication: DEPRESSION
     Dosage: 45 MG
     Route: 048

REACTIONS (6)
  - CELLULITIS [None]
  - DECUBITUS ULCER [None]
  - DIABETIC ULCER [None]
  - DIARRHOEA [None]
  - SEPTIC SHOCK [None]
  - URINARY TRACT INFECTION [None]
